FAERS Safety Report 4291357-3 (Version None)
Quarter: 2004Q1

REPORT INFORMATION
  Report Type: 
  Country: None (occurrence: None)
  Receive Date: 20040206
  Receipt Date: 20040206
  Transmission Date: 20041129
  Serious: Yes (Death)
  Sender: FDA-Public Use
  Company Number: None

PATIENT
  Sex: Male

DRUGS (10)
  1. PLAVIX [Suspect]
     Indication: ATHEROSCLEROSIS
     Dosage: 75 MG PO DAILY
     Route: 048
  2. ASPIRIN [Suspect]
     Dosage: 325 MG PO DAILY
     Route: 048
  3. SIMVASTATIN [Concomitant]
  4. ISOSORBIDE MONONITRATE [Concomitant]
  5. TOPROL-XL [Concomitant]
  6. SYNTHROID [Concomitant]
  7. INSULIN [Concomitant]
  8. FLOVENT [Concomitant]
  9. DIFLUCAN [Concomitant]
  10. MORPHINE [Concomitant]

REACTIONS (5)
  - CARDIO-RESPIRATORY ARREST [None]
  - COMA [None]
  - GASTROINTESTINAL HAEMORRHAGE [None]
  - HYPOTENSION [None]
  - VENTRICULAR FIBRILLATION [None]
